FAERS Safety Report 4562070-X (Version None)
Quarter: 2005Q1

REPORT INFORMATION
  Report Type: 
  Country: None (occurrence: None)
  Receive Date: 20050127
  Receipt Date: 20050114
  Transmission Date: 20050727
  Serious: Yes (Hospitalization, Disabling)
  Sender: FDA-Public Use
  Company Number: US-JNJFOC-20040706842

PATIENT
  Sex: Female
  Weight: 92.08 kg

DRUGS (13)
  1. REMICADE [Suspect]
     Route: 042
  2. REMICADE [Suspect]
     Indication: RHEUMATOID ARTHRITIS
     Route: 042
  3. METHOTREXATE [Suspect]
  4. METHOTREXATE [Suspect]
     Indication: RHEUMATOID ARTHRITIS
  5. ESTRACE [Concomitant]
     Dosage: DAILY
  6. CLONIDINE [Concomitant]
  7. DIOVAN [Concomitant]
     Dosage: DAILY
  8. SKELAXIN [Concomitant]
  9. PREVACID [Concomitant]
     Dosage: DAILY
  10. DARVOCET-N 100 [Concomitant]
  11. DARVOCET-N 100 [Concomitant]
     Dosage: WHEN EVER NECESSARY
  12. MOBIC [Concomitant]
  13. PAXIL [Concomitant]

REACTIONS (11)
  - APHTHOUS STOMATITIS [None]
  - ARTHRALGIA [None]
  - BACK PAIN [None]
  - CLUSTER HEADACHE [None]
  - HEPATIC CYST [None]
  - HISTOPLASMOSIS [None]
  - INJURY [None]
  - MUSCULOSKELETAL STIFFNESS [None]
  - OSTEOARTHRITIS [None]
  - PAIN [None]
  - RENAL IMPAIRMENT [None]
